FAERS Safety Report 8908123 (Version 1)
Quarter: 2012Q4

REPORT INFORMATION
  Report Type: 
  Country: AU (occurrence: AU)
  Receive Date: 20121113
  Receipt Date: 20121113
  Transmission Date: 20130627
  Serious: Yes (Death, Hospitalization)
  Sender: FDA-Public Use
  Company Number: AU-AMGEN-AUSSP2012072496

PATIENT
  Age: 81 Year
  Sex: Female

DRUGS (3)
  1. PROLIA [Suspect]
     Indication: OSTEOPOROSIS
     Dosage: 60 mg, UNK
     Route: 058
     Dates: start: 20120703, end: 20120703
  2. CALTRATE                           /00944201/ [Concomitant]
  3. VITAMIN D /00107901/ [Concomitant]

REACTIONS (4)
  - Pneumonia [Fatal]
  - Leukaemia [Fatal]
  - Renal impairment [Recovered/Resolved]
  - Hypocalcaemia [Recovered/Resolved]
